FAERS Safety Report 8365013-6 (Version None)
Quarter: 2012Q2

REPORT INFORMATION
  Report Type: 
  Country: None (occurrence: None)
  Receive Date: 20120516
  Receipt Date: 20120508
  Transmission Date: 20120825
  Serious: Yes (Death)
  Sender: FDA-Public Use
  Company Number: US-GLAXOSMITHKLINE-A0977743A

PATIENT
  Age: 64 Year
  Sex: Female

DRUGS (5)
  1. OSCAL 500 + D [Concomitant]
  2. PROCHLORPERAZINE [Concomitant]
  3. TYKERB [Suspect]
     Indication: PRODUCT USED FOR UNKNOWN INDICATION
     Dosage: 750MG PER DAY
     Route: 048
  4. MULTI-VITAMIN [Concomitant]
  5. TYLENOL (CAPLET) [Concomitant]

REACTIONS (1)
  - DEATH [None]
